FAERS Safety Report 25849930 (Version 1)
Quarter: 2025Q3

REPORT INFORMATION
  Report Type: Report from Study
  Country: CA (occurrence: CA)
  Receive Date: 20250926
  Receipt Date: 20250926
  Transmission Date: 20251020
  Serious: Yes (Other)
  Sender: ACCORD
  Company Number: None

PATIENT
  Age: 43 Year
  Sex: Male

DRUGS (3)
  1. METHOTREXATE [Suspect]
     Active Substance: METHOTREXATE
     Indication: Product used for unknown indication
     Route: 037
  2. FOLIC ACID [Suspect]
     Active Substance: FOLIC ACID
     Indication: Product used for unknown indication
  3. INFLIXIMAB [Suspect]
     Active Substance: INFLIXIMAB
     Indication: Crohn^s disease
     Route: 042

REACTIONS (4)
  - Diarrhoea [Not Recovered/Not Resolved]
  - Vomiting [Not Recovered/Not Resolved]
  - Pneumonia [Not Recovered/Not Resolved]
  - Post procedural infection [Not Recovered/Not Resolved]
